FAERS Safety Report 21402592 (Version 1)
Quarter: 2022Q4

REPORT INFORMATION
  Report Type: Spontaneous
  Country: HR (occurrence: HR)
  Receive Date: 20221003
  Receipt Date: 20221003
  Transmission Date: 20230113
  Serious: Yes (Life-Threatening, Hospitalization, Disabling)
  Sender: FDA-Public Use
  Company Number: None

PATIENT

DRUGS (1)
  1. ONCASPAR [Suspect]
     Active Substance: PEGASPARGASE
     Indication: Acute lymphocytic leukaemia
     Dosage: UNK
     Route: 042

REACTIONS (7)
  - Hepatic function abnormal [Recovered/Resolved with Sequelae]
  - Pancreatitis necrotising [Recovered/Resolved with Sequelae]
  - Multiple organ dysfunction syndrome [Recovered/Resolved with Sequelae]
  - Lipase increased [Recovered/Resolved with Sequelae]
  - Alanine aminotransferase increased [Recovered/Resolved with Sequelae]
  - Amylase increased [Recovered/Resolved with Sequelae]
  - Hypovolaemic shock [Recovered/Resolved with Sequelae]

NARRATIVE: CASE EVENT DATE: 20220906
